FAERS Safety Report 7038550-4 (Version None)
Quarter: 2010Q4

REPORT INFORMATION
  Report Type: 
  Country: None (occurrence: None)
  Receive Date: 20101011
  Receipt Date: 20100930
  Transmission Date: 20110411
  Serious: Yes (Other)
  Sender: FDA-Public Use
  Company Number: JP-PFIZER INC-2010124412

PATIENT

DRUGS (1)
  1. ZOLOFT [Suspect]
     Dosage: UNK
     Route: 048

REACTIONS (1)
  - HAEMORRHAGE SUBCUTANEOUS [None]
